FAERS Safety Report 11791186 (Version 2)
Quarter: 2015Q4

REPORT INFORMATION
  Report Type: Spontaneous
  Country: RO (occurrence: RO)
  Receive Date: 20151201
  Receipt Date: 20151216
  Transmission Date: 20160305
  Serious: Yes (Other)
  Sender: FDA-Public Use
  Company Number: RO-PFIZER INC-2015403094

PATIENT
  Age: 65 Year

DRUGS (4)
  1. SUTENT [Suspect]
     Active Substance: SUNITINIB MALATE
     Dosage: 37.5 MG, DAILY, 4 WEEK WITH 2 WEEKS PAUSE
     Dates: start: 201304
  2. LIPANTHYL [Concomitant]
     Active Substance: FENOFIBRATE
     Dosage: 145 MG, 1X/DAY
     Route: 048
     Dates: start: 201209, end: 201304
  3. SUTENT [Suspect]
     Active Substance: SUNITINIB MALATE
     Indication: RENAL CANCER
     Dosage: 50 MG, DAILY 4 WEEK WITH 2 WEEKS PAUSE
     Dates: start: 201201
  4. SUTENT [Suspect]
     Active Substance: SUNITINIB MALATE
     Dosage: 25 MG, DAILY, 4 WEEK WITH 2 WEEKS PAUSE
     Dates: start: 201309

REACTIONS (14)
  - Skin hypertrophy [Unknown]
  - Diarrhoea [Unknown]
  - Abdominal pain [Unknown]
  - Palpitations [Unknown]
  - Dizziness [Unknown]
  - Hypertriglyceridaemia [Recovered/Resolved]
  - Hypercholesterolaemia [Recovered/Resolved]
  - Stomatitis [Unknown]
  - Haemangioma of liver [Unknown]
  - Dry skin [Unknown]
  - Weight decreased [Unknown]
  - Nausea [Unknown]
  - Skin discolouration [Unknown]
  - Hypothyroidism [Recovered/Resolved]

NARRATIVE: CASE EVENT DATE: 201206
